FAERS Safety Report 16973850 (Version 7)
Quarter: 2020Q1

REPORT INFORMATION
  Report Type: Spontaneous
  Country: US (occurrence: US)
  Receive Date: 20191030
  Receipt Date: 20200320
  Transmission Date: 20200409
  Serious: No
  Sender: FDA-Public Use
  Company Number: US-BIOGEN-2019BI00801790

PATIENT
  Sex: Female

DRUGS (2)
  1. TYSABRI [Suspect]
     Active Substance: NATALIZUMAB
     Indication: MULTIPLE SCLEROSIS
     Dosage: NOT RELATED TO LOT
     Route: 065
     Dates: start: 20090721, end: 20130626
  2. TYSABRI [Suspect]
     Active Substance: NATALIZUMAB
     Dosage: OTHER DOSAGE
     Route: 065
     Dates: start: 20190802, end: 20191220

REACTIONS (6)
  - Drug ineffective [Unknown]
  - Stress [Unknown]
  - Mental impairment [Unknown]
  - Multiple sclerosis relapse [Not Recovered/Not Resolved]
  - Mobility decreased [Unknown]
  - Fatigue [Unknown]
